FAERS Safety Report 12290471 (Version 1)
Quarter: 2016Q2

REPORT INFORMATION
  Report Type: Spontaneous
  Country: US (occurrence: US)
  Receive Date: 20160421
  Receipt Date: 20160421
  Transmission Date: 20160815
  Serious: No
  Sender: FDA-Public Use
  Company Number: US-ENDO PHARMACEUTICALS INC.-2015-002577

PATIENT
  Age: 68 Year
  Sex: Male
  Weight: 104.42 kg

DRUGS (5)
  1. LISINOPRIL TABLETS 20MG [Concomitant]
     Active Substance: LISINOPRIL
     Indication: HYPERTENSION
  2. SYNTHROID [Concomitant]
     Active Substance: LEVOTHYROXINE SODIUM
     Indication: THYROID DISORDER
  3. CLONIDINE HCL TABLETS 0.2MG [Suspect]
     Active Substance: CLONIDINE HYDROCHLORIDE
     Indication: HYPERTENSION
     Route: 048
     Dates: start: 20150825
  4. SIMVASTATIN. [Concomitant]
     Active Substance: SIMVASTATIN
     Indication: BLOOD CHOLESTEROL
  5. NORTRIPTYLINE [Concomitant]
     Active Substance: NORTRIPTYLINE
     Indication: TINNITUS

REACTIONS (3)
  - Blood pressure decreased [Recovered/Resolved]
  - Dry mouth [Not Recovered/Not Resolved]
  - Dizziness [Recovered/Resolved]

NARRATIVE: CASE EVENT DATE: 20150825
